FAERS Safety Report 10064563 (Version 1)
Quarter: 2014Q2

REPORT INFORMATION
  Report Type: Spontaneous
  Country: CA (occurrence: None)
  Receive Date: 20140407
  Receipt Date: 20140407
  Transmission Date: 20141212
  Serious: Yes (Other)
  Sender: FDA-Public Use
  Company Number: None

PATIENT
  Age: 61 Year
  Sex: Female
  Weight: 66.68 kg

DRUGS (1)
  1. BUPROPION SR [Suspect]
     Indication: ALOPECIA
     Route: 048

REACTIONS (3)
  - Alopecia [None]
  - Tinnitus [None]
  - Hearing impaired [None]
